FAERS Safety Report 9713375 (Version 2)
Quarter: 2013Q4

REPORT INFORMATION
  Report Type: Spontaneous
  Country: CZ (occurrence: CZ)
  Receive Date: 20131126
  Receipt Date: 20131204
  Transmission Date: 20140711
  Serious: Yes (Hospitalization, Other)
  Sender: FDA-Public Use
  Company Number: PHHY2013CZ133117

PATIENT
  Age: 33 Year
  Sex: Male

DRUGS (20)
  1. CLOZAPINE [Suspect]
     Indication: SCHIZOPHRENIA, PARANOID TYPE
     Dosage: 550 MG
  2. CLOZAPINE [Suspect]
     Dosage: 250 MG, DAILY
  3. CLOZAPINE [Suspect]
     Dosage: 350 MG, DAILY
  4. CLOZAPINE [Suspect]
     Dosage: 300 MG, DAILY
  5. RISPERIDONE [Suspect]
     Indication: SCHIZOID PERSONALITY DISORDER
     Dates: start: 201002
  6. QUETIAPINE [Suspect]
     Indication: SCHIZOID PERSONALITY DISORDER
  7. ZIPRASIDONE [Suspect]
     Indication: SCHIZOID PERSONALITY DISORDER
  8. GABAPENTIN [Suspect]
     Dosage: 600 MG
  9. OLANZAPINE [Suspect]
     Indication: SCHIZOID PERSONALITY DISORDER
     Dosage: 10 MG, DAILY
  10. OLANZAPINE [Suspect]
     Dosage: 5 MG
  11. SERTRALINE [Suspect]
     Dosage: 50 MG
  12. HALOPERIDOL [Suspect]
  13. PALIPERIDONE [Suspect]
     Dosage: 9 MG
  14. PALIPERIDONE PALMITATE [Concomitant]
     Dosage: 150 MG
  15. PALIPERIDONE PALMITATE [Concomitant]
     Dosage: 100 MG
  16. METOPROLOL [Concomitant]
     Dosage: 100 MG
  17. THEOPHYLLINE [Concomitant]
     Dosage: 300 MG
  18. MONTELUCAST [Concomitant]
     Dosage: 10 MG
  19. FORMOTEROL [Concomitant]
  20. BIPERIDEN [Concomitant]
     Dosage: 6 MG

REACTIONS (24)
  - Psychiatric symptom [Unknown]
  - Schizophrenia, paranoid type [Unknown]
  - Persecutory delusion [Recovered/Resolved]
  - Hallucination, auditory [Recovering/Resolving]
  - Somatic hallucination [Unknown]
  - Paraesthesia [Unknown]
  - Speech disorder [Unknown]
  - Tension [Unknown]
  - Anxiety [Unknown]
  - Altered state of consciousness [Unknown]
  - Cognitive disorder [Unknown]
  - Suicidal ideation [Unknown]
  - Extrapyramidal disorder [Unknown]
  - Drug intolerance [Unknown]
  - Masked facies [Recovering/Resolving]
  - Emotional disorder [Recovering/Resolving]
  - Psychomotor retardation [Unknown]
  - Dependent personality disorder [Unknown]
  - Dyskinesia [Unknown]
  - Thinking abnormal [Unknown]
  - Fatigue [Unknown]
  - Somnolence [Unknown]
  - Therapeutic response decreased [Unknown]
  - Drug ineffective [Unknown]
